FAERS Safety Report 11525536 (Version 1)
Quarter: 2015Q3

REPORT INFORMATION
  Report Type: Spontaneous
  Country: US (occurrence: US)
  Receive Date: 20150918
  Receipt Date: 20150918
  Transmission Date: 20151125
  Serious: Yes (Other)
  Sender: FDA-Public Use
  Company Number: US-TAKEDA-TPA2012A02584

PATIENT

DRUGS (6)
  1. ACTOS [Suspect]
     Active Substance: PIOGLITAZONE HYDROCHLORIDE
     Dates: start: 20091016, end: 20110721
  2. METFORMIN [Concomitant]
     Active Substance: METFORMIN HYDROCHLORIDE
     Dates: start: 2011
  3. BYETTA [Concomitant]
     Active Substance: EXENATIDE
     Dates: start: 1998
  4. HUMALOG [Concomitant]
     Active Substance: INSULIN LISPRO
     Dates: start: 1998
  5. LEVEMIR [Concomitant]
     Active Substance: INSULIN DETEMIR
     Dates: start: 1998
  6. ACTOS [Suspect]
     Active Substance: PIOGLITAZONE HYDROCHLORIDE
     Indication: TYPE 2 DIABETES MELLITUS
     Dates: start: 20090625, end: 20090924

REACTIONS (1)
  - Bladder cancer recurrent [Unknown]

NARRATIVE: CASE EVENT DATE: 2009
